FAERS Safety Report 7038031-8 (Version None)
Quarter: 2010Q4

REPORT INFORMATION
  Report Type: 
  Country: None (occurrence: None)
  Receive Date: 20101011
  Receipt Date: 20101006
  Transmission Date: 20110411
  Serious: Yes (Hospitalization)
  Sender: FDA-Public Use
  Company Number: RU-SANOFI-AVENTIS-2010SA060321

PATIENT
  Age: 38 Year
  Sex: Female

DRUGS (7)
  1. LANTUS [Suspect]
     Indication: DIABETES MELLITUS
     Route: 058
     Dates: start: 20090901
  2. LISINOPRIL [Concomitant]
  3. EGILOK [Concomitant]
     Indication: PALPITATIONS
  4. GLYCYRRHIZIC ACID [Concomitant]
     Indication: PROPHYLAXIS
  5. TROXEVASIN [Concomitant]
  6. ASPIRIN [Concomitant]
  7. INDAPAMIDE [Concomitant]

REACTIONS (1)
  - BLOOD CREATININE INCREASED [None]
